FAERS Safety Report 14540078 (Version 1)
Quarter: 2018Q1

REPORT INFORMATION
  Report Type: Spontaneous
  Country: NL (occurrence: NL)
  Receive Date: 20180216
  Receipt Date: 20180216
  Transmission Date: 20180509
  Serious: Yes (Hospitalization, Other)
  Sender: FDA-Public Use
  Company Number: NL-TEVA-2018-NL-857606

PATIENT
  Sex: Female

DRUGS (1)
  1. PREDNISON SANDOZ [Suspect]
     Active Substance: PREDNISONE
     Dates: start: 2017, end: 2017

REACTIONS (7)
  - Loss of personal independence in daily activities [Not Recovered/Not Resolved]
  - Peripheral swelling [Not Recovered/Not Resolved]
  - Pain [Not Recovered/Not Resolved]
  - Pneumonia [Unknown]
  - Adverse event [Not Recovered/Not Resolved]
  - Limb injury [Not Recovered/Not Resolved]
  - Anxiety [Not Recovered/Not Resolved]

NARRATIVE: CASE EVENT DATE: 2017
